FAERS Safety Report 9435658 (Version 1)
Quarter: 2013Q3

REPORT INFORMATION
  Report Type: Other
  Country: US (occurrence: US)
  Receive Date: 20130801
  Receipt Date: 20130801
  Transmission Date: 20140515
  Serious: Yes (Hospitalization)
  Sender: FDA-Public Use
  Company Number: US-BRISTOL-MYERS SQUIBB COMPANY-19152362

PATIENT
  Age: 62 Year
  Sex: Male

DRUGS (14)
  1. METFORMIN HCL [Suspect]
  2. ACETAMINOPHEN [Suspect]
  3. FERROUS SULFATE [Suspect]
  4. ALBUTEROL [Suspect]
  5. BENZTROPINE MESYLATE [Suspect]
  6. BUDESONIDE [Suspect]
  7. DOCUSATE [Suspect]
  8. GEMFIBROZIL [Suspect]
  9. GLIPIZIDE [Suspect]
  10. LORAZEPAM [Suspect]
  11. OXYBUTYNIN [Suspect]
  12. ATENOLOL [Suspect]
  13. CLOZAPINE [Interacting]
  14. MIRTAZAPINE [Interacting]

REACTIONS (7)
  - Confusional state [Unknown]
  - Catatonia [Unknown]
  - Agitation [Unknown]
  - Aggression [Unknown]
  - Hallucination [Unknown]
  - Drug level changed [Recovering/Resolving]
  - Drug interaction [Unknown]
